FAERS Safety Report 20020284 (Version 1)
Quarter: 2021Q4

REPORT INFORMATION
  Report Type: Spontaneous
  Country: CO (occurrence: CO)
  Receive Date: 20211101
  Receipt Date: 20211101
  Transmission Date: 20220303
  Serious: No
  Sender: FDA-Public Use
  Company Number: CO-PFIZER INC-2021881237

PATIENT
  Age: 12 Year
  Sex: Female

DRUGS (2)
  1. GENOTROPIN [Suspect]
     Active Substance: SOMATROPIN
     Indication: Epiphyses premature fusion
     Dosage: 1.4 MG, DAILY
     Route: 058
     Dates: start: 20210709
  2. GENOTROPIN [Suspect]
     Active Substance: SOMATROPIN
     Indication: Growth hormone deficiency

REACTIONS (8)
  - Wrong technique in device usage process [Unknown]
  - Product dose omission in error [Unknown]
  - Injection site pain [Unknown]
  - Bone pain [Unknown]
  - Pain in extremity [Not Recovered/Not Resolved]
  - Mobility decreased [Not Recovered/Not Resolved]
  - Exposure via skin contact [Unknown]
  - Needle issue [Unknown]

NARRATIVE: CASE EVENT DATE: 20210709
